FAERS Safety Report 9856281 (Version 1)
Quarter: 2014Q1

REPORT INFORMATION
  Report Type: Spontaneous
  Country: SK (occurrence: SK)
  Receive Date: 20140130
  Receipt Date: 20140130
  Transmission Date: 20141002
  Serious: Yes (Hospitalization)
  Sender: FDA-Public Use
  Company Number: PHHY2014SK010621

PATIENT
  Age: 38 Year
  Sex: Female
  Weight: 60 kg

DRUGS (4)
  1. GILENYA [Suspect]
     Indication: RELAPSING-REMITTING MULTIPLE SCLEROSIS
     Dosage: 0.5 MG, QD
     Route: 048
     Dates: start: 20130321, end: 20140105
  2. GILENYA [Suspect]
     Dosage: 0.5 MG, QD
     Route: 048
  3. CITALOPRAM [Concomitant]
     Indication: MENTAL DISORDER
  4. CLONAZEPAM [Concomitant]
     Indication: MENTAL DISORDER

REACTIONS (1)
  - Suicide attempt [Recovering/Resolving]
